FAERS Safety Report 9897460 (Version 1)
Quarter: 2014Q1

REPORT INFORMATION
  Report Type: Report from Study
  Country: US (occurrence: US)
  Receive Date: 20140214
  Receipt Date: 20140214
  Transmission Date: 20141002
  Serious: Yes (Death, Other)
  Sender: FDA-Public Use
  Company Number: US-ROCHE-1320755

PATIENT
  Sex: Male

DRUGS (12)
  1. AVASTIN [Suspect]
     Indication: OESOPHAGEAL ADENOCARCINOMA
     Route: 042
     Dates: start: 20111109
  2. AVASTIN [Suspect]
     Indication: METASTASES TO BONE
  3. HERCEPTIN [Suspect]
     Indication: OESOPHAGEAL ADENOCARCINOMA METASTATIC
     Route: 065
     Dates: start: 201010
  4. HERCEPTIN [Suspect]
     Indication: METASTASES TO BONE
  5. 5-FU [Concomitant]
     Route: 065
     Dates: start: 201111
  6. TRINOTECAN [Concomitant]
  7. LEUCOVORIN [Concomitant]
     Route: 065
     Dates: start: 201111
  8. OXALIPLATIN [Concomitant]
     Route: 065
     Dates: start: 201010
  9. DEXAMETHASONE [Concomitant]
     Dosage: PRIOR TO CHEMOTHERAPY; OVER 20 MINUTES
     Route: 042
  10. GEMCITABINE [Concomitant]
     Route: 065
     Dates: start: 201010
  11. EMEND [Concomitant]
     Dosage: 1 HOUR PRIOR TO CHEMOTHERAPY
     Route: 048
     Dates: start: 20111109
  12. EMEND [Concomitant]
     Dosage: ON THE MORNING OF DAY 2 AND DAY 3
     Route: 048

REACTIONS (3)
  - Death [Fatal]
  - Disease progression [Unknown]
  - Off label use [Unknown]
